FAERS Safety Report 10052955 (Version 2)
Quarter: 2014Q2

REPORT INFORMATION
  Report Type: Spontaneous
  Country: TR (occurrence: None)
  Receive Date: 20140331
  Receipt Date: 20140414
  Transmission Date: 20141212
  Serious: Yes (Other)
  Sender: FDA-Public Use
  Company Number: 2014MPI00246

PATIENT
  Age: 32 Year
  Sex: Male

DRUGS (2)
  1. BRENTUXIMAB VEDOTIN [Suspect]
     Indication: HODGKIN^S DISEASE
     Dosage: 6 CYCLES
  2. PREDNISOLONE (PREDNISOLONE ACETATE) [Suspect]

REACTIONS (11)
  - Thyroiditis acute [None]
  - Hypothyroidism [None]
  - Pancreatitis [None]
  - Blood glucose increased [None]
  - Amylase increased [None]
  - Lipase increased [None]
  - Pyrexia [None]
  - Hepatic steatosis [None]
  - Urine ketone body present [None]
  - Glucose urine present [None]
  - Heart rate increased [None]
